FAERS Safety Report 5254896-4 (Version None)
Quarter: 2007Q1

REPORT INFORMATION
  Report Type: 
  Country: None (occurrence: None)
  Receive Date: 20070302
  Receipt Date: 20070302
  Transmission Date: 20070707
  Serious: Yes (Other)
  Sender: FDA-Public Use
  Company Number: None

PATIENT
  Age: 35 Year
  Sex: Female
  Weight: 104.3273 kg

DRUGS (1)
  1. AVELOX [Suspect]
     Indication: CHRONIC SINUSITIS
     Dosage: 1 DAILY PO
     Route: 048
     Dates: start: 20070210, end: 20070223

REACTIONS (4)
  - DYSPNOEA [None]
  - MYALGIA [None]
  - PRURITUS [None]
  - TENDON PAIN [None]
